FAERS Safety Report 17505410 (Version 1)
Quarter: 2020Q1

REPORT INFORMATION
  Report Type: Spontaneous
  Country: BE (occurrence: BE)
  Receive Date: 20200305
  Receipt Date: 20200305
  Transmission Date: 20200409
  Serious: Yes (Other)
  Sender: FDA-Public Use
  Company Number: BE-MYLANLABS-2020M1023561

PATIENT
  Age: 38 Year
  Sex: Female

DRUGS (7)
  1. ABILIFY [Concomitant]
     Active Substance: ARIPIPRAZOLE
     Dosage: UNK
  2. BELLOZAL [Concomitant]
     Active Substance: BILASTINE
     Dosage: UNK
  3. LEPONEX [Suspect]
     Active Substance: CLOZAPINE
     Indication: PRODUCT USED FOR UNKNOWN INDICATION
     Dosage: UNK
     Dates: start: 2016
  4. PANTOMED                           /00178901/ [Concomitant]
     Active Substance: DEXPANTHENOL
     Dosage: UNK
  5. L-THYROXINE                        /00068001/ [Concomitant]
     Active Substance: LEVOTHYROXINE
     Dosage: UNK
  6. TRIBVIT [Concomitant]
     Active Substance: CYANOCOBALAMIN\FOLIC ACID\PYRIDOXINE HYDROCHLORIDE
     Dosage: UNK
  7. CLOZAPINE SANDOZ [Suspect]
     Active Substance: CLOZAPINE
     Indication: PSYCHOTIC DISORDER
     Dosage: THE PATIENT WILL MOST LIKELY TAKE CLOZAPINE FOR THE REST OF HIS LIFE.
     Route: 048
     Dates: start: 20160110

REACTIONS (17)
  - Dysphemia [Recovered/Resolved with Sequelae]
  - Obesity [Recovered/Resolved with Sequelae]
  - Night blindness [Recovered/Resolved with Sequelae]
  - Fear of falling [Recovered/Resolved with Sequelae]
  - Speech sound disorder [Recovered/Resolved with Sequelae]
  - Diabetes mellitus [Recovered/Resolved with Sequelae]
  - Head discomfort [Recovered/Resolved with Sequelae]
  - Loss of consciousness [Recovered/Resolved with Sequelae]
  - Depression [Recovered/Resolved with Sequelae]
  - Muscular weakness [Recovered/Resolved with Sequelae]
  - Visual impairment [Recovered/Resolved with Sequelae]
  - Disturbance in attention [Recovered/Resolved with Sequelae]
  - Laziness [Recovered/Resolved with Sequelae]
  - Angioedema [Recovered/Resolved with Sequelae]
  - Somnolence [Recovered/Resolved with Sequelae]
  - Photophobia [Recovered/Resolved with Sequelae]
  - Salivary hypersecretion [Recovered/Resolved with Sequelae]
